FAERS Safety Report 14917918 (Version 1)
Quarter: 2018Q2

REPORT INFORMATION
  Report Type: Spontaneous
  Country: US (occurrence: US)
  Receive Date: 20180501
  Receipt Date: 20180501
  Transmission Date: 20180711
  Serious: Yes (Hospitalization)
  Sender: FDA-Public Use
  Company Number: None

PATIENT
  Age: 81 Year
  Sex: Male
  Weight: 93.3 kg

DRUGS (3)
  1. CISPLATIN. [Concomitant]
     Active Substance: CISPLATIN
     Dosage: ?          OTHER DOSE:2 WKS ON, 1 WK OFF;?
     Route: 042
     Dates: start: 20171002
  2. GEMCITABINE [Suspect]
     Active Substance: GEMCITABINE\GEMCITABINE HYDROCHLORIDE
     Dosage: ?          OTHER DOSE:2 WKS ON, 1 WK OFF;?
     Route: 042
     Dates: start: 20171002
  3. COPANLISIB. [Concomitant]
     Active Substance: COPANLISIB
     Dosage: ?          OTHER DOSE:2 WKS ON, 1 WK OFF;?
     Route: 042
     Dates: start: 20171002

REACTIONS (1)
  - Colitis [None]

NARRATIVE: CASE EVENT DATE: 20180426
